FAERS Safety Report 8383175-1 (Version None)
Quarter: 2012Q2

REPORT INFORMATION
  Report Type: 
  Country: None (occurrence: None)
  Receive Date: 20120524
  Receipt Date: 20120510
  Transmission Date: 20120825
  Serious: Yes (Death)
  Sender: FDA-Public Use
  Company Number: ES-JNJFOC-20120314975

PATIENT
  Age: 49 Year
  Sex: Male
  Weight: 64 kg

DRUGS (5)
  1. INFLIXIMAB, RECOMBINANT [Suspect]
     Indication: PSORIASIS
     Route: 042
     Dates: start: 20070122, end: 20100216
  2. ENBREL [Suspect]
     Indication: PSORIASIS
     Route: 058
     Dates: start: 20050411, end: 20060619
  3. EFALIZUMAB [Suspect]
     Indication: PSORIASIS
     Route: 065
     Dates: start: 20061002, end: 20070122
  4. ACITRETIN [Suspect]
     Indication: PRODUCT USED FOR UNKNOWN INDICATION
     Route: 065
     Dates: start: 20060313, end: 20060605
  5. CYCLOSPORINE [Suspect]
     Indication: PRODUCT USED FOR UNKNOWN INDICATION
     Route: 065
     Dates: start: 20060728, end: 20061002

REACTIONS (1)
  - COMPLETED SUICIDE [None]
